FAERS Safety Report 21958816 (Version 1)
Quarter: 2023Q1

REPORT INFORMATION
  Report Type: Spontaneous
  Country: US (occurrence: US)
  Receive Date: 20230206
  Receipt Date: 20230206
  Transmission Date: 20230417
  Serious: No
  Sender: FDA-Public Use
  Company Number: US-AERIE-2022-002580

PATIENT
  Age: 79 Year
  Sex: Male

DRUGS (4)
  1. RHOPRESSA [Suspect]
     Active Substance: NETARSUDIL MESYLATE
     Indication: Open angle glaucoma
     Dosage: UNK UNK, QHS OS
     Route: 047
  2. KETOROLAC [Concomitant]
     Active Substance: KETOROLAC TROMETHAMINE
     Indication: Cystoid macular oedema
     Dosage: UNK, BID OS
     Route: 047
  3. DORZOLAMIDE\TIMOLOL [Concomitant]
     Active Substance: DORZOLAMIDE\TIMOLOL
     Indication: Cystoid macular oedema
     Dosage: UNK, BID OS
     Route: 047
  4. BRIMONIDINE [Concomitant]
     Active Substance: BRIMONIDINE TARTRATE
     Indication: Cystoid macular oedema
     Dosage: UNK, BID OS
     Route: 047

REACTIONS (1)
  - Corneal oedema [Recovered/Resolved]
